FAERS Safety Report 8588978-6 (Version None)
Quarter: 2012Q3

REPORT INFORMATION
  Report Type: 
  Country: None (occurrence: None)
  Receive Date: 20120813
  Receipt Date: 20120807
  Transmission Date: 20120928
  Serious: Yes (Other)
  Sender: FDA-Public Use
  Company Number: US-SANOFI-AVENTIS-2012SA054431

PATIENT
  Sex: Male

DRUGS (2)
  1. DIURETICS [Concomitant]
  2. ALLEGRA [Suspect]
     Route: 048

REACTIONS (2)
  - HYDRONEPHROSIS [None]
  - DIZZINESS [None]
